FAERS Safety Report 20132317 (Version 2)
Quarter: 2022Q1

REPORT INFORMATION
  Report Type: Spontaneous
  Country: None (occurrence: GB)
  Receive Date: 20211130
  Receipt Date: 20220103
  Transmission Date: 20220423
  Serious: Yes (Hospitalization, Disabling, Other)
  Sender: FDA-Public Use
  Company Number: GB-Breckenridge Pharmaceutical, Inc.-2122500

PATIENT
  Age: 31 Year
  Sex: Female
  Weight: 63.5 kg

DRUGS (1)
  1. OMEPRAZOLE [Suspect]
     Active Substance: OMEPRAZOLE
     Indication: Dyspepsia
     Route: 048
     Dates: start: 20110525

REACTIONS (12)
  - Cogwheel rigidity [Unknown]
  - Cyanosis [Unknown]
  - Dyskinesia [Unknown]
  - Drug withdrawal syndrome [Unknown]
  - Sensory loss [Unknown]
  - Neuroleptic malignant syndrome [Unknown]
  - Paralysis [Unknown]
  - Serotonin syndrome [Unknown]
  - Gait disturbance [Unknown]
  - Paralysis [Unknown]
  - Aphasia [Unknown]
  - Maternal exposure during pregnancy [Unknown]
